FAERS Safety Report 14125978 (Version 2)
Quarter: 2019Q1

REPORT INFORMATION
  Report Type: Report from Study
  Country: US (occurrence: US)
  Receive Date: 20171025
  Receipt Date: 20190320
  Transmission Date: 20190417
  Serious: Yes (Other)
  Sender: FDA-Public Use
  Company Number: US-JAZZ-2017-US-013783

PATIENT
  Sex: Female

DRUGS (12)
  1. MODAFINIL. [Concomitant]
     Active Substance: MODAFINIL
     Indication: PRODUCT USED FOR UNKNOWN INDICATION
  2. LEVOTHYROXINE. [Concomitant]
     Active Substance: LEVOTHYROXINE
     Indication: PRODUCT USED FOR UNKNOWN INDICATION
     Dosage: UNK
     Dates: start: 201501
  3. XYREM [Suspect]
     Active Substance: SODIUM OXYBATE
     Dosage: DOSE ADJUSTMENT
     Route: 048
     Dates: start: 201607, end: 201607
  4. XYREM [Suspect]
     Active Substance: SODIUM OXYBATE
     Dosage: 4.5 G, BID
     Route: 048
     Dates: start: 201607
  5. ATORVASTATIN [Concomitant]
     Active Substance: ATORVASTATIN
     Indication: PRODUCT USED FOR UNKNOWN INDICATION
     Dosage: UNK
     Dates: start: 201607
  6. CYMBALTA [Concomitant]
     Active Substance: DULOXETINE HYDROCHLORIDE
     Indication: PRODUCT USED FOR UNKNOWN INDICATION
     Dosage: UNK
     Dates: start: 201601
  7. LYRICA [Concomitant]
     Active Substance: PREGABALIN
     Dosage: 75
     Dates: start: 201606
  8. NAPROXEN. [Concomitant]
     Active Substance: NAPROXEN
     Indication: PRODUCT USED FOR UNKNOWN INDICATION
     Dosage: UNK
     Dates: end: 201606
  9. BUSPIRONE HCL [Concomitant]
     Active Substance: BUSPIRONE HYDROCHLORIDE
     Indication: PRODUCT USED FOR UNKNOWN INDICATION
     Dosage: UNK
     Dates: start: 201601
  10. LYRICA [Concomitant]
     Active Substance: PREGABALIN
     Dosage: 50
     Dates: end: 201606
  11. XYREM [Suspect]
     Active Substance: SODIUM OXYBATE
     Indication: NARCOLEPSY
     Dosage: 2.25 G, BID
     Route: 048
     Dates: start: 201607, end: 201607
  12. LYRICA [Concomitant]
     Active Substance: PREGABALIN
     Indication: PRODUCT USED FOR UNKNOWN INDICATION
     Dosage: 25
     Dates: end: 201606

REACTIONS (1)
  - Hernia [Recovered/Resolved]
